FAERS Safety Report 5174709-9 (Version None)
Quarter: 2006Q4

REPORT INFORMATION
  Report Type: 
  Country: None (occurrence: None)
  Receive Date: 20061206
  Receipt Date: 20061128
  Transmission Date: 20070319
  Serious: Yes (Death, Life-Threatening)
  Sender: FDA-Public Use
  Company Number: 2006145303

PATIENT
  Age: 32 Year
  Sex: Male
  Weight: 54 kg

DRUGS (4)
  1. DOXORUBICIN HCL [Suspect]
     Indication: TESTICULAR CHORIOCARCINOMA
     Dosage: INTRAVENOUS
     Route: 042
     Dates: start: 20060829
  2. ETOPOSIDE [Suspect]
     Indication: TESTICULAR CHORIOCARCINOMA
     Dosage: INTRAVENOUS
     Route: 042
     Dates: start: 20060829
  3. CYCLOPHOSPHAMIDE [Suspect]
     Indication: TESTICULAR CHORIOCARCINOMA
     Dosage: 1900 MG (DAILY), INTRAVENOUS
     Route: 042
     Dates: start: 20060829
  4. LENOGRASTIM (LENOGRASTIM) [Suspect]
     Indication: TESTICULAR CHORIOCARCINOMA
     Dosage: 340 I.U. (1 IN 2 D), ORAL
     Route: 048
     Dates: start: 20060831, end: 20060907

REACTIONS (14)
  - ACUTE RESPIRATORY DISTRESS SYNDROME [None]
  - ANXIETY [None]
  - BRADYCARDIA [None]
  - BRAIN OEDEMA [None]
  - CEREBRAL ISCHAEMIA [None]
  - ENTEROCOCCAL INFECTION [None]
  - ESCHERICHIA INFECTION [None]
  - HYPOKALAEMIA [None]
  - INTERSTITIAL LUNG DISEASE [None]
  - POST PROCEDURAL DISCHARGE [None]
  - PURULENT DISCHARGE [None]
  - SUTURE RELATED COMPLICATION [None]
  - TACHYCARDIA [None]
  - THROMBOCYTOPENIA [None]
